FAERS Safety Report 12838224 (Version 2)
Quarter: 2016Q4

REPORT INFORMATION
  Report Type: Spontaneous
  Country: US (occurrence: US)
  Receive Date: 20161012
  Receipt Date: 20161110
  Transmission Date: 20170207
  Serious: Yes (Death, Other)
  Sender: FDA-Public Use
  Company Number: PHEH2016US026162

PATIENT
  Sex: Female
  Weight: 35 kg

DRUGS (1)
  1. VOTRIENT [Suspect]
     Active Substance: PAZOPANIB HYDROCHLORIDE
     Indication: SOFT TISSUE NEOPLASM
     Dosage: 600 MG, QD
     Route: 048
     Dates: start: 20160204

REACTIONS (2)
  - Metastases to central nervous system [Fatal]
  - Rhabdomyosarcoma [Unknown]
